FAERS Safety Report 16131077 (Version 1)
Quarter: 2019Q1

REPORT INFORMATION
  Report Type: Spontaneous
  Country: US (occurrence: US)
  Receive Date: 20190328
  Receipt Date: 20190328
  Transmission Date: 20190418
  Serious: Yes (Hospitalization, Other)
  Sender: FDA-Public Use
  Company Number: US-009507513-1903USA010134

PATIENT
  Sex: Female
  Weight: 51.25 kg

DRUGS (12)
  1. BENADRYL [Concomitant]
     Active Substance: DIPHENHYDRAMINE HYDROCHLORIDE
  2. ADVIL [Concomitant]
     Active Substance: IBUPROFEN
  3. NUVARING [Suspect]
     Active Substance: ETHINYL ESTRADIOL\ETONOGESTREL
     Indication: MENSTRUATION IRREGULAR
     Dosage: 0.12 MG/DAY/0.015 MG/DAY
     Route: 067
     Dates: start: 2009
  4. ZOLPIDEM [Concomitant]
     Active Substance: ZOLPIDEM\ZOLPIDEM TARTRATE
  5. FERRALET 90 [Concomitant]
     Active Substance: ASCORBIC ACID\CYANOCOBALAMIN\DOCUSATE SODIUM\FOLIC ACID\IRON
  6. XANAX [Concomitant]
     Active Substance: ALPRAZOLAM
  7. ALEVE [Concomitant]
     Active Substance: NAPROXEN SODIUM
  8. TYLENOL WITH CODEINE #3 (ACETAMINOPHEN (+) CODEINE PHOSPHATE) [Concomitant]
  9. ONDANSETRON [Concomitant]
     Active Substance: ONDANSETRON
  10. PANTOPRAZOLE [Concomitant]
     Active Substance: PANTOPRAZOLE
  11. DICYCLOMINE HYDROCHLORIDE. [Concomitant]
     Active Substance: DICYCLOMINE HYDROCHLORIDE
  12. DILTIAZEM. [Concomitant]
     Active Substance: DILTIAZEM

REACTIONS (17)
  - Gastritis erosive [Recovering/Resolving]
  - Hypomenorrhoea [Recovering/Resolving]
  - Gastrointestinal motility disorder [Recovering/Resolving]
  - Asthenia [Recovering/Resolving]
  - Premenstrual syndrome [Recovering/Resolving]
  - Dyspnoea [Recovering/Resolving]
  - Product shape issue [Unknown]
  - Product quality issue [Unknown]
  - Product packaging issue [Unknown]
  - Helicobacter infection [Recovering/Resolving]
  - Rectal neoplasm [Recovering/Resolving]
  - Abdominal pain upper [Recovering/Resolving]
  - Decreased appetite [Recovering/Resolving]
  - Depression [Recovering/Resolving]
  - Discomfort [Recovered/Resolved]
  - Pain [Recovered/Resolved]
  - Product use in unapproved indication [Unknown]
